FAERS Safety Report 8801183 (Version 2)
Quarter: 2012Q4

REPORT INFORMATION
  Report Type: 
  Country: GB (occurrence: GB)
  Receive Date: 20120920
  Receipt Date: 20121015
  Transmission Date: 20130627
  Serious: Yes (Hospitalization)
  Sender: FDA-Public Use
  Company Number: GB-009507513-1206USA01548

PATIENT
  Age: 76 Year
  Sex: Male

DRUGS (5)
  1. ZOCOR [Suspect]
     Indication: HYPERCHOLESTEROLAEMIA
     Dosage: 40 mg, qd
     Route: 048
  2. DICLOFENAC [Suspect]
     Indication: OSTEOARTHRITIS
     Dosage: 50 mg, tid
     Route: 048
  3. CINNARIZINE [Concomitant]
  4. GLUCOSAMINE [Concomitant]
  5. SILDENAFIL CITRATE [Concomitant]

REACTIONS (7)
  - Renal failure acute [Recovered/Resolved]
  - Blood creatine phosphokinase increased [Recovered/Resolved]
  - Myopathy [Recovered/Resolved]
  - Rhabdomyolysis [Recovered/Resolved]
  - Myalgia [Unknown]
  - Liver function test abnormal [Unknown]
  - Blood creatinine increased [Recovered/Resolved]
